FAERS Safety Report 11106603 (Version 1)
Quarter: 2015Q2

REPORT INFORMATION
  Report Type: Spontaneous
  Country: US (occurrence: US)
  Receive Date: 20150512
  Receipt Date: 20150512
  Transmission Date: 20150821
  Serious: No
  Sender: FDA-Public Use
  Company Number: US-ASTRAZENECA-2015SE41174

PATIENT

DRUGS (3)
  1. BYETTA [Suspect]
     Active Substance: EXENATIDE
     Route: 065
  2. INSULIN [Concomitant]
     Active Substance: INSULIN NOS
  3. VICTOZA [Concomitant]
     Active Substance: LIRAGLUTIDE
     Indication: OBESITY

REACTIONS (3)
  - Diarrhoea [Unknown]
  - Abdominal pain upper [Recovered/Resolved]
  - Weight decreased [Unknown]
